FAERS Safety Report 21475619 (Version 1)
Quarter: 2022Q4

REPORT INFORMATION
  Report Type: Spontaneous
  Country: MX (occurrence: MX)
  Receive Date: 20221019
  Receipt Date: 20221019
  Transmission Date: 20230112
  Serious: Yes (Other)
  Sender: FDA-Public Use
  Company Number: MX-UCBSA-2022035420

PATIENT
  Age: 23 Year
  Sex: Male

DRUGS (2)
  1. CIMZIA [Suspect]
     Active Substance: CERTOLIZUMAB PEGOL
     Indication: Ankylosing spondylitis
     Dosage: 400 MILLIGRAM, EV 4 WEEKS
     Route: 058
     Dates: start: 202107
  2. COVID-19 VACCINE [Concomitant]
     Indication: Product used for unknown indication
     Dosage: UNK

REACTIONS (15)
  - Chest pain [Unknown]
  - Lower respiratory tract infection viral [Unknown]
  - Pyrexia [Unknown]
  - Dizziness [Unknown]
  - Asthenia [Unknown]
  - Fatigue [Recovering/Resolving]
  - Cough [Unknown]
  - Decreased appetite [Unknown]
  - Pain in extremity [Unknown]
  - Feeling hot [Unknown]
  - Arthralgia [Unknown]
  - Neck pain [Unknown]
  - SARS-CoV-2 test positive [Unknown]
  - COVID-19 immunisation [Unknown]
  - SARS-CoV-2 test negative [Unknown]

NARRATIVE: CASE EVENT DATE: 20221007
